FAERS Safety Report 13865746 (Version 1)
Quarter: 2017Q3

REPORT INFORMATION
  Report Type: Report from Study
  Country: JP (occurrence: JP)
  Receive Date: 20170814
  Receipt Date: 20170814
  Transmission Date: 20171127
  Serious: Yes (Death, Other)
  Sender: FDA-Public Use
  Company Number: JP-ARIAD PHARMACEUTICALS, INC-2016JP007519

PATIENT
  Age: 72 Year
  Sex: Female
  Weight: 39 kg

DRUGS (5)
  1. ICLUSIG [Suspect]
     Active Substance: PONATINIB
     Dosage: 30 MG, DAILY DOSE
     Route: 048
     Dates: start: 20170130, end: 20170220
  2. ICLUSIG [Suspect]
     Active Substance: PONATINIB
     Dosage: 15 MG, DAILY DOSE
     Route: 048
     Dates: start: 20161216, end: 20161219
  3. ICLUSIG [Suspect]
     Active Substance: PONATINIB
     Dosage: 15 MG, DAILY DOSE
     Route: 048
     Dates: start: 20170102, end: 20170129
  4. ICLUSIG [Suspect]
     Active Substance: PONATINIB
     Dosage: 15 MG, DAILY DOSE
     Route: 048
     Dates: start: 20161223, end: 20161228
  5. ICLUSIG [Suspect]
     Active Substance: PONATINIB
     Indication: CHRONIC MYELOID LEUKAEMIA TRANSFORMATION
     Dosage: 30 MG, DAILY DOSE
     Route: 048
     Dates: start: 20161124, end: 20161215

REACTIONS (2)
  - Liver disorder [Fatal]
  - Pleural effusion [Fatal]

NARRATIVE: CASE EVENT DATE: 20161014
